FAERS Safety Report 4689564-0 (Version None)
Quarter: 2005Q2

REPORT INFORMATION
  Report Type: 
  Country: None (occurrence: None)
  Receive Date: 20050613
  Receipt Date: 20050613
  Transmission Date: 20051028
  Serious: Yes (Hospitalization)
  Sender: FDA-Public Use
  Company Number: None

PATIENT
  Age: 78 Year
  Sex: Male
  Weight: 79 kg

DRUGS (2)
  1. HYDROCHLOROTHIAZIDE [Suspect]
     Indication: POLYURIA
     Dates: end: 20050101
  2. LASIX [Suspect]
     Dates: end: 20050101

REACTIONS (1)
  - RENAL FAILURE ACUTE [None]
